FAERS Safety Report 13108394 (Version 1)
Quarter: 2017Q1

REPORT INFORMATION
  Report Type: Spontaneous
  Country: US (occurrence: US)
  Receive Date: 20170112
  Receipt Date: 20170112
  Transmission Date: 20170428
  Serious: Yes (Hospitalization)
  Sender: FDA-Public Use
  Company Number: None

PATIENT
  Age: 69 Year
  Sex: Male
  Weight: 84.2 kg

DRUGS (1)
  1. TEMOZOLOMIDE. [Suspect]
     Active Substance: TEMOZOLOMIDE
     Dates: end: 20151122

REACTIONS (5)
  - Epilepsy [None]
  - Complex partial seizures [None]
  - Glioblastoma multiforme [None]
  - Major depression [None]
  - Lethargy [None]

NARRATIVE: CASE EVENT DATE: 20161229
